FAERS Safety Report 21234109 (Version 1)
Quarter: 2022Q3

REPORT INFORMATION
  Report Type: Report from Study
  Country: US (occurrence: US)
  Receive Date: 20220819
  Receipt Date: 20220819
  Transmission Date: 20221027
  Serious: Yes (Other)
  Sender: FDA-Public Use
  Company Number: US-JAZZ-2022-US-026166

PATIENT
  Sex: Male

DRUGS (10)
  1. XYREM [Suspect]
     Active Substance: SODIUM OXYBATE
     Indication: Narcolepsy
     Dosage: UNK
  2. XYREM [Suspect]
     Active Substance: SODIUM OXYBATE
     Indication: Cataplexy
  3. ASPIRIN [Concomitant]
     Active Substance: ASPIRIN
     Dosage: UNK
     Dates: start: 20151208
  4. VITAMINS [Concomitant]
     Active Substance: VITAMINS
     Dosage: UNK
     Dates: start: 20151208
  5. MODAFINIL [Concomitant]
     Active Substance: MODAFINIL
     Dosage: UNK
     Dates: start: 20190130
  6. TRAMADOL HCL [Concomitant]
     Active Substance: TRAMADOL HYDROCHLORIDE
     Dosage: UNK
     Dates: start: 20210601
  7. MELOXICAM [Concomitant]
     Active Substance: MELOXICAM
     Dosage: UNK
     Dates: start: 20210601
  8. ATORVASTATIN [Concomitant]
     Active Substance: ATORVASTATIN
     Dosage: UNK
     Dates: start: 20210805
  9. METOPROLOL SUCCINATE [Concomitant]
     Active Substance: METOPROLOL SUCCINATE
     Dosage: UNK
     Dates: start: 20210805
  10. ENALAPRIL MALEATE [Concomitant]
     Active Substance: ENALAPRIL MALEATE
     Dosage: UNK
     Dates: start: 20210806

REACTIONS (2)
  - Ankle fracture [Unknown]
  - Arthritis [Unknown]
